FAERS Safety Report 6028394-4 (Version None)
Quarter: 2009Q1

REPORT INFORMATION
  Report Type: 
  Country: None (occurrence: None)
  Receive Date: 20090106
  Receipt Date: 20081229
  Transmission Date: 20090719
  Serious: Yes (Other)
  Sender: FDA-Public Use
  Company Number: US-ASTRAZENECA-2008UW28915

PATIENT
  Age: 77 Year
  Sex: Female
  Weight: 74.4 kg

DRUGS (3)
  1. CRESTOR [Suspect]
     Indication: BLOOD CHOLESTEROL INCREASED
     Route: 048
     Dates: start: 20081201, end: 20081223
  2. REQUIP [Concomitant]
  3. TYLENOL (CAPLET) [Concomitant]

REACTIONS (8)
  - ARRHYTHMIA [None]
  - BODY TEMPERATURE INCREASED [None]
  - DYSGEUSIA [None]
  - MYALGIA [None]
  - NERVOUSNESS [None]
  - SENSATION OF HEAVINESS [None]
  - TREMOR [None]
  - YELLOW SKIN [None]
